FAERS Safety Report 6354663-4 (Version None)
Quarter: 2009Q3

REPORT INFORMATION
  Report Type: 
  Country: None (occurrence: None)
  Receive Date: 20090914
  Receipt Date: 20090904
  Transmission Date: 20100115
  Serious: Yes (Hospitalization)
  Sender: FDA-Public Use
  Company Number: ES-ABBOTT-09P-144-0564176-00

PATIENT
  Age: 71 Year
  Sex: Male

DRUGS (2)
  1. DEPAKENE [Suspect]
     Indication: PARTIAL SEIZURES
     Route: 048
     Dates: start: 20080530, end: 20080818
  2. KEPPRA [Suspect]
     Indication: PARTIAL SEIZURES
     Route: 048
     Dates: start: 20080627, end: 20080912

REACTIONS (3)
  - DRUG INTERACTION [None]
  - HEPATITIS CHOLESTATIC [None]
  - HEPATOCELLULAR INJURY [None]
